FAERS Safety Report 4717772-9 (Version None)
Quarter: 2005Q3

REPORT INFORMATION
  Report Type: 
  Country: None (occurrence: None)
  Receive Date: 20050715
  Receipt Date: 20050103
  Transmission Date: 20060218
  Serious: Yes (Death)
  Sender: FDA-Public Use
  Company Number: 2005-00003

PATIENT
  Age: 63 Year
  Sex: Female

DRUGS (2)
  1. INTEGRILIN [Suspect]
     Indication: THERAPEUTIC PROCEDURE
     Dates: start: 20041221, end: 20041221
  2. ANGIOMAX [Concomitant]

REACTIONS (1)
  - RETROPERITONEAL HAEMORRHAGE [None]
